FAERS Safety Report 8884544 (Version 1)
Quarter: 2012Q4

REPORT INFORMATION
  Report Type: 
  Country: US (occurrence: US)
  Receive Date: 20121104
  Receipt Date: 20121104
  Transmission Date: 20130627
  Serious: Yes (Hospitalization)
  Sender: FDA-Public Use
  Company Number: US-BAYER-2012-113681

PATIENT
  Age: 62 Year
  Sex: Male
  Weight: 99.77 kg

DRUGS (1)
  1. BAYER CHEWABLE LOW DOSE BABY ASPIRIN TABLET ORANGE [Suspect]
     Indication: MYOCARDIAL INFARCT PROPHYLAXIS
     Dosage: 81 mg, UNK
     Route: 048
     Dates: start: 201207, end: 201209

REACTIONS (12)
  - Hyperhidrosis [Recovered/Resolved]
  - Wheezing [Recovered/Resolved]
  - Haemoptysis [Recovered/Resolved]
  - Myocardial infarction [Recovered/Resolved]
  - Dysarthria [Recovered/Resolved]
  - Rectal haemorrhage [Recovered/Resolved]
  - Diplopia [Not Recovered/Not Resolved]
  - Muscular weakness [Not Recovered/Not Resolved]
  - Dyspnoea [Recovered/Resolved]
  - Nasal congestion [Not Recovered/Not Resolved]
  - Abnormal faeces [Recovered/Resolved]
  - Epistaxis [Recovered/Resolved]
